FAERS Safety Report 23165819 (Version 2)
Quarter: 2023Q4

REPORT INFORMATION
  Report Type: Spontaneous
  Country: GB (occurrence: GB)
  Receive Date: 20231109
  Receipt Date: 20231122
  Transmission Date: 20240109
  Serious: Yes (Other)
  Sender: FDA-Public Use
  Company Number: GB-TEVA-2023-GB-2942737

PATIENT
  Sex: Male

DRUGS (12)
  1. ARIPIPRAZOLE [Suspect]
     Active Substance: ARIPIPRAZOLE
     Indication: Antipsychotic therapy
     Dosage: DEPOT
     Route: 065
  2. PALIPERIDONE PALMITATE [Suspect]
     Active Substance: PALIPERIDONE PALMITATE
     Indication: Antipsychotic therapy
     Dosage: DEPOT
     Route: 065
  3. SCOPOLAMINE [Suspect]
     Active Substance: SCOPOLAMINE
     Indication: Product used for unknown indication
     Route: 065
  4. OLANZAPINE [Suspect]
     Active Substance: OLANZAPINE
     Indication: Antipsychotic therapy
     Route: 048
  5. OLANZAPINE [Suspect]
     Active Substance: OLANZAPINE
     Indication: Schizophrenia
     Dosage: LONG ACTING INJECTIONS, 300MG EVERY 2 WEEKS
     Route: 065
     Dates: start: 202109
  6. OLANZAPINE [Suspect]
     Active Substance: OLANZAPINE
     Dosage: LONG ACTING INJECTIONS, 405MG EVERY 4 WEEKS
     Route: 065
     Dates: start: 202112
  7. AMISULPRIDE [Suspect]
     Active Substance: AMISULPRIDE
     Indication: Antipsychotic therapy
     Route: 065
  8. ZUCLOPENTHIXOL DECANOATE [Suspect]
     Active Substance: ZUCLOPENTHIXOL DECANOATE
     Indication: Antipsychotic therapy
     Dosage: DEPOT
     Route: 065
  9. FLUPENTIXOL [Suspect]
     Active Substance: FLUPENTIXOL
     Indication: Antipsychotic therapy
     Route: 048
  10. FLUPENTIXOL [Suspect]
     Active Substance: FLUPENTIXOL
     Dosage: DEPOT
     Route: 065
  11. CLOZAPINE [Suspect]
     Active Substance: CLOZAPINE
     Indication: Schizophrenia
     Dosage: 400 MILLIGRAM DAILY; ONCE A DAY
     Route: 065
     Dates: start: 202011
  12. DIVALPROEX SODIUM [Concomitant]
     Active Substance: DIVALPROEX SODIUM
     Indication: Antipsychotic therapy
     Route: 065
     Dates: start: 202009

REACTIONS (4)
  - Weight increased [Unknown]
  - Extrapyramidal disorder [Unknown]
  - Constipation [Unknown]
  - Treatment noncompliance [Unknown]
